FAERS Safety Report 7505170-4 (Version None)
Quarter: 2011Q2

REPORT INFORMATION
  Report Type: 
  Country: None (occurrence: None)
  Receive Date: 20110526
  Receipt Date: 20110509
  Transmission Date: 20111010
  Serious: Yes (Hospitalization, Other)
  Sender: FDA-Public Use
  Company Number: US-BAYER-2011-002785

PATIENT
  Age: 32 Year
  Sex: Female
  Weight: 81.633 kg

DRUGS (2)
  1. YASMIN [Suspect]
     Indication: ACNE
     Dosage: 1 TAB/DAY
     Dates: start: 20060101
  2. DROSPIRENONE AND ETHINYL ESTRADIOL [Suspect]
     Indication: ACNE
     Dosage: 1 TAB/DAY

REACTIONS (3)
  - GALLBLADDER INJURY [None]
  - CHOLECYSTITIS ACUTE [None]
  - CHOLELITHIASIS [None]
